FAERS Safety Report 8271558-X (Version None)
Quarter: 2012Q2

REPORT INFORMATION
  Report Type: 
  Country: None (occurrence: None)
  Receive Date: 20120410
  Receipt Date: 20120406
  Transmission Date: 20120825
  Serious: No
  Sender: FDA-Public Use
  Company Number: US-PFIZER INC-2012087498

PATIENT
  Sex: Female
  Weight: 65.306 kg

DRUGS (1)
  1. PRISTIQ [Suspect]
     Indication: ANXIETY
     Dosage: UNK, 1X/DAY
     Route: 048
     Dates: start: 20110101, end: 20110901

REACTIONS (1)
  - WEIGHT INCREASED [None]
